FAERS Safety Report 11286139 (Version 2)
Quarter: 2015Q3

REPORT INFORMATION
  Report Type: Spontaneous
  Country: DE (occurrence: None)
  Receive Date: 20150717
  Receipt Date: 20150731
  Transmission Date: 20151125
  Serious: Yes (Hospitalization)
  Sender: FDA-Public Use
  Company Number: DE-LHC-2015084

PATIENT
  Sex: Female

DRUGS (1)
  1. CONOXIA (OXYGEN) (INHALATION GAS) (OXYGEN) (VERUM) [Suspect]
     Active Substance: OXYGEN
     Indication: PRODUCT USED FOR UNKNOWN INDICATION
     Route: 055

REACTIONS (1)
  - Thermal burn [None]

NARRATIVE: CASE EVENT DATE: 20150701
